FAERS Safety Report 19678355 (Version 2)
Quarter: 2021Q3

REPORT INFORMATION
  Report Type: Spontaneous
  Country: US (occurrence: US)
  Receive Date: 20210809
  Receipt Date: 20210826
  Transmission Date: 20211014
  Serious: Yes (Disabling)
  Sender: FDA-Public Use
  Company Number: US-PFIZER INC-2019174639

PATIENT
  Age: 76 Year
  Sex: Female

DRUGS (3)
  1. PREMARIN [Suspect]
     Active Substance: ESTROGENS, CONJUGATED
     Indication: MENOPAUSE
  2. PREMARIN [Suspect]
     Active Substance: ESTROGENS, CONJUGATED
     Indication: HORMONE REPLACEMENT THERAPY
  3. PREMARIN [Suspect]
     Active Substance: ESTROGENS, CONJUGATED
     Indication: MAJOR DEPRESSION
     Dosage: UNK UNK, CYCLIC (APPLY A PEA SIZED AMOUNT TO VAGINAL OPENING 3 TO 4 TIMES PER WEEK)
     Route: 067

REACTIONS (3)
  - Back pain [Unknown]
  - Therapeutic response unexpected [Unknown]
  - Off label use [Unknown]
